FAERS Safety Report 18198352 (Version 2)
Quarter: 2020Q3

REPORT INFORMATION
  Report Type: Spontaneous
  Country: IN (occurrence: IN)
  Receive Date: 20200826
  Receipt Date: 20200908
  Transmission Date: 20201103
  Serious: Yes (Death)
  Sender: FDA-Public Use
  Company Number: IN-PFIZER INC-2020330714

PATIENT
  Age: 60 Year
  Sex: Female

DRUGS (1)
  1. PALBACE [Suspect]
     Active Substance: PALBOCICLIB
     Indication: BREAST CANCER
     Dosage: UNK
     Dates: start: 2018, end: 201903

REACTIONS (4)
  - Pruritus [Unknown]
  - Arthralgia [Unknown]
  - Death [Fatal]
  - Fungal skin infection [Unknown]

NARRATIVE: CASE EVENT DATE: 20200821
